FAERS Safety Report 23179479 (Version 8)
Quarter: 2024Q3

REPORT INFORMATION
  Report Type: Spontaneous
  Country: AU (occurrence: AU)
  Receive Date: 20231113
  Receipt Date: 20240715
  Transmission Date: 20241016
  Serious: Yes (Death, Other)
  Sender: CSL BEHRING
  Company Number: AU-BEH-2023165054

PATIENT
  Age: 5 Year
  Sex: Female
  Weight: 21 kg

DRUGS (20)
  1. HUMAN IMMUNOGLOBULIN G [Suspect]
     Active Substance: HUMAN IMMUNOGLOBULIN G
     Indication: Dermatomyositis
     Dosage: 5 GRAM, TOT
     Route: 042
     Dates: start: 20231030, end: 20231030
  2. HUMAN IMMUNOGLOBULIN G [Suspect]
     Active Substance: HUMAN IMMUNOGLOBULIN G
     Dosage: 5 GRAM, TOT
     Route: 042
     Dates: start: 20231030, end: 20231031
  3. HUMAN IMMUNOGLOBULIN G [Suspect]
     Active Substance: HUMAN IMMUNOGLOBULIN G
     Dosage: 5 GRAM, TOT
     Route: 042
     Dates: start: 20231031, end: 20231031
  4. HUMAN IMMUNOGLOBULIN G [Suspect]
     Active Substance: HUMAN IMMUNOGLOBULIN G
     Dosage: 5 GRAM, TOT
     Route: 042
     Dates: start: 20231031, end: 20231031
  5. HUMAN IMMUNOGLOBULIN G [Suspect]
     Active Substance: HUMAN IMMUNOGLOBULIN G
     Dosage: 25 GRAM
     Route: 065
     Dates: start: 20231030, end: 20231031
  6. HUMAN IMMUNOGLOBULIN G [Suspect]
     Active Substance: HUMAN IMMUNOGLOBULIN G
     Dosage: 1 GRAM PER KILOGRAM
     Route: 042
     Dates: start: 20231030, end: 20231030
  7. HUMAN IMMUNOGLOBULIN G [Suspect]
     Active Substance: HUMAN IMMUNOGLOBULIN G
     Dosage: 1 GRAM PER KILOGRAM
     Route: 042
     Dates: start: 20231031, end: 20231031
  8. INFLIXIMAB [Concomitant]
     Active Substance: INFLIXIMAB
     Dosage: 10 MILLIGRAM/SQ. METER, 4 WEEKLY
     Route: 065
  9. METHYLPREDNISOLONE [Concomitant]
     Active Substance: METHYLPREDNISOLONE
     Dosage: PULSE MONTHLY
     Route: 042
  10. CYCLOSPORINE [Concomitant]
     Active Substance: CYCLOSPORINE
     Dosage: 50 MILLIGRAM, BID
     Route: 065
  11. PREDNISOLONE [Concomitant]
     Active Substance: PREDNISOLONE
     Dosage: 8 MILLIGRAM, QD
     Route: 065
  12. BACTRIM [Concomitant]
     Active Substance: SULFAMETHOXAZOLE\TRIMETHOPRIM
     Dosage: 0.5 TABLET MON/WED/FRI
     Route: 065
  13. ZOLEDRONIC ACID [Concomitant]
     Active Substance: ZOLEDRONIC ACID
     Dosage: UNK
     Route: 065
     Dates: start: 20231018
  14. CALCIUM\VITAMIN D [Concomitant]
     Active Substance: CALCIUM\VITAMIN D
     Route: 065
  15. DEXAMETHASONE [Concomitant]
     Active Substance: DEXAMETHASONE
     Indication: Premedication
     Route: 065
  16. CETIRIZINE [Concomitant]
     Active Substance: CETIRIZINE HYDROCHLORIDE
     Indication: Premedication
  17. ACETAMINOPHEN [Concomitant]
     Active Substance: ACETAMINOPHEN
     Indication: Premedication
  18. ACETAMINOPHEN [Concomitant]
     Active Substance: ACETAMINOPHEN
     Indication: Premedication
  19. ONDANSETRON [Concomitant]
     Active Substance: ONDANSETRON
     Indication: Premedication
  20. ONDANSETRON [Concomitant]
     Active Substance: ONDANSETRON
     Indication: Premedication

REACTIONS (26)
  - Brain oedema [Fatal]
  - Brain death [Fatal]
  - Vomiting [Not Recovered/Not Resolved]
  - Nausea [Not Recovered/Not Resolved]
  - Vomiting [Not Recovered/Not Resolved]
  - Pyrexia [Not Recovered/Not Resolved]
  - Headache [Not Recovered/Not Resolved]
  - Lethargy [Not Recovered/Not Resolved]
  - Nausea [Not Recovered/Not Resolved]
  - Vomiting [Not Recovered/Not Resolved]
  - Vomiting [Not Recovered/Not Resolved]
  - Urinary incontinence [Unknown]
  - Pupillary reflex impaired [Unknown]
  - Unresponsive to stimuli [Unknown]
  - Decorticate posture [Unknown]
  - Moaning [Unknown]
  - Respiratory distress [Unknown]
  - Dyspnoea [Unknown]
  - Off label use [Unknown]
  - Heart rate decreased [Not Recovered/Not Resolved]
  - Blood pressure increased [Not Recovered/Not Resolved]
  - Oxygen saturation decreased [Not Recovered/Not Resolved]
  - Tachycardia [Not Recovered/Not Resolved]
  - Blood pressure increased [Not Recovered/Not Resolved]
  - Pyrexia [Not Recovered/Not Resolved]
  - Diabetes insipidus [Not Recovered/Not Resolved]

NARRATIVE: CASE EVENT DATE: 20231101
